FAERS Safety Report 18179090 (Version 2)
Quarter: 2021Q1

REPORT INFORMATION
  Report Type: Report from Study
  Country: CA (occurrence: CA)
  Receive Date: 20200821
  Receipt Date: 20210104
  Transmission Date: 20210419
  Serious: No
  Sender: FDA-Public Use
  Company Number: CA-TOLMAR, INC.-20CA022437

PATIENT
  Age: 66 Year
  Sex: Male

DRUGS (3)
  1. CORTISONE [Concomitant]
     Active Substance: CORTISONE
     Indication: RHEUMATOID ARTHRITIS
     Route: 065
  2. ELIGARD [Suspect]
     Active Substance: LEUPROLIDE ACETATE
     Indication: PROSTATE CANCER
     Dosage: 30 MG, Q 4 MONTH
     Route: 058
     Dates: start: 20200506
  3. ELIGARD [Suspect]
     Active Substance: LEUPROLIDE ACETATE
     Dosage: 30 MG, Q 4 MONTH
     Route: 058
     Dates: start: 20200826

REACTIONS (6)
  - Arthralgia [Unknown]
  - Hot flush [Recovering/Resolving]
  - Dyspnoea exertional [Not Recovered/Not Resolved]
  - Memory impairment [Not Recovered/Not Resolved]
  - Oedema peripheral [Unknown]
  - Disturbance in attention [Not Recovered/Not Resolved]

NARRATIVE: CASE EVENT DATE: 202006
